FAERS Safety Report 7655955-9 (Version None)
Quarter: 2011Q3

REPORT INFORMATION
  Report Type: 
  Country: None (occurrence: None)
  Receive Date: 20110804
  Receipt Date: 20110725
  Transmission Date: 20111222
  Serious: No
  Sender: FDA-Public Use
  Company Number: US-B.I. PHARMACEUTICALS,INC./RIDGEFIELD-2011-BP-18419BP

PATIENT
  Sex: Male

DRUGS (6)
  1. LANSOPRAZOLE [Concomitant]
     Indication: DYSPEPSIA
     Dosage: 60 MG
     Route: 048
     Dates: start: 20030101
  2. DULCOLAX [Concomitant]
     Indication: CONSTIPATION
     Dosage: 100 MG
     Route: 048
     Dates: start: 19800101
  3. ASPIRIN [Concomitant]
     Indication: CORONARY ARTERY DISEASE
     Dosage: 81 MG
     Route: 048
     Dates: start: 20030101
  4. CRESTOR [Concomitant]
     Indication: BLOOD CHOLESTEROL INCREASED
     Dosage: 20 MG
     Route: 048
     Dates: start: 20030101
  5. PRADAXA [Suspect]
     Indication: ATRIAL FIBRILLATION
     Dosage: 300 MG
     Route: 048
     Dates: start: 20110507
  6. RAMIPRIL [Concomitant]
     Indication: CORONARY ARTERY DISEASE
     Dosage: 20 MG
     Route: 048
     Dates: start: 20030101

REACTIONS (2)
  - ABDOMINAL DISCOMFORT [None]
  - GASTROINTESTINAL MOTILITY DISORDER [None]
